FAERS Safety Report 9863004 (Version 2)
Quarter: 2014Q1

REPORT INFORMATION
  Report Type: Spontaneous
  Country: IT (occurrence: IT)
  Receive Date: 20140203
  Receipt Date: 20140219
  Transmission Date: 20141002
  Serious: Yes (Hospitalization)
  Sender: FDA-Public Use
  Company Number: PHHY2014IT011959

PATIENT
  Age: 37 Year
  Sex: Male

DRUGS (5)
  1. SANDIMMUN [Suspect]
     Indication: ERYTHRODERMIC PSORIASIS
     Route: 048
  2. ZOLPIDEM ACTAVIS [Concomitant]
  3. LORAZEPAM [Concomitant]
  4. DULOXETINE [Concomitant]
  5. DELORAZEPAM [Concomitant]
     Dosage: UNK

REACTIONS (1)
  - Restrictive cardiomyopathy [Unknown]
